FAERS Safety Report 6729407-4 (Version None)
Quarter: 2010Q2

REPORT INFORMATION
  Report Type: 
  Country: None (occurrence: None)
  Receive Date: 20100518
  Receipt Date: 20100514
  Transmission Date: 20101027
  Serious: Yes (Other)
  Sender: FDA-Public Use
  Company Number: US-BIOGENIDEC-2010BI014401

PATIENT
  Age: 37 Year
  Sex: Male

DRUGS (1)
  1. TYSABRI [Suspect]
     Indication: MULTIPLE SCLEROSIS
     Route: 042
     Dates: start: 20070220, end: 20100312

REACTIONS (7)
  - ABSCESS [None]
  - BLADDER CATHETERISATION [None]
  - CELLULITIS [None]
  - DERMATITIS [None]
  - OSTEOMYELITIS [None]
  - SKIN ULCER [None]
  - URINARY TRACT INFECTION [None]
